FAERS Safety Report 7153302-2 (Version None)
Quarter: 2010Q4

REPORT INFORMATION
  Report Type: 
  Country: None (occurrence: None)
  Receive Date: 20101213
  Receipt Date: 20101209
  Transmission Date: 20110411
  Serious: Yes (Death, Hospitalization)
  Sender: FDA-Public Use
  Company Number: NO-B.I. PHARMACEUTICALS,INC./RIDGEFIELD-2010-SW-00398NO

PATIENT
  Sex: Male

DRUGS (3)
  1. ASPIRIN AND DIPYRIDAMOLE [Suspect]
     Indication: CEREBRAL INFARCTION
     Dosage: 200/25 MG
     Route: 048
     Dates: start: 20081201, end: 20101001
  2. LANSOPRAZOLE [Concomitant]
     Indication: OESOPHAGITIS
     Dosage: 30 MG
     Route: 048
     Dates: start: 20070101
  3. SIMVASTATIN [Concomitant]
     Indication: CEREBRAL INFARCTION
     Dosage: 40 MG
     Route: 048
     Dates: start: 20081201

REACTIONS (2)
  - CEREBRAL HAEMORRHAGE [None]
  - DEATH [None]
